FAERS Safety Report 24553942 (Version 1)
Quarter: 2024Q4

REPORT INFORMATION
  Report Type: Spontaneous
  Country: US (occurrence: US)
  Receive Date: 20241028
  Receipt Date: 20241028
  Transmission Date: 20250115
  Serious: No
  Sender: GLENMARK
  Company Number: US-GLENMARK PHARMACEUTICALS-2024GMK089497

PATIENT

DRUGS (11)
  1. CARVEDILOL [Suspect]
     Active Substance: CARVEDILOL
     Indication: Atrial fibrillation
     Dosage: UNK, BID, TWICE A DAY
     Route: 048
  2. AMIODARONE [Concomitant]
     Active Substance: AMIODARONE
     Indication: Pericardial effusion
     Dosage: UNK, BID, TWICE A DAY
     Route: 065
  3. AMIODARONE [Concomitant]
     Active Substance: AMIODARONE
     Indication: Cardiac dysfunction
  4. DILTIAZEM [Concomitant]
     Active Substance: DILTIAZEM
     Indication: Pericardial effusion
     Dosage: UNK, BID, TWICE A DAY
     Route: 065
  5. DILTIAZEM [Concomitant]
     Active Substance: DILTIAZEM
     Indication: Cardiac dysfunction
  6. PRADAXA [Concomitant]
     Active Substance: DABIGATRAN ETEXILATE MESYLATE
     Indication: Pericardial effusion
     Dosage: UNK, BID, TWICE A DAY
     Route: 065
  7. PRADAXA [Concomitant]
     Active Substance: DABIGATRAN ETEXILATE MESYLATE
     Indication: Cardiac dysfunction
  8. FUROSEMIDE [Concomitant]
     Active Substance: FUROSEMIDE
     Indication: Pericardial effusion
     Dosage: UNK, BID, TWICE A DAY
     Route: 065
  9. FUROSEMIDE [Concomitant]
     Active Substance: FUROSEMIDE
     Indication: Cardiac dysfunction
  10. POTASSIUM [Concomitant]
     Active Substance: POTASSIUM
     Indication: Pericardial effusion
     Dosage: UNK, BID, TWICE A DAY
     Route: 065
  11. POTASSIUM [Concomitant]
     Active Substance: POTASSIUM
     Indication: Cardiac dysfunction

REACTIONS (1)
  - Product prescribing issue [Unknown]
